FAERS Safety Report 20561194 (Version 1)
Quarter: 2022Q1

REPORT INFORMATION
  Report Type: Spontaneous
  Country: US (occurrence: US)
  Receive Date: 20220307
  Receipt Date: 20220307
  Transmission Date: 20220424
  Serious: No
  Sender: FDA-Public Use
  Company Number: US-GW PHARMA-202202USGW00989

PATIENT
  Age: 17 Year
  Sex: Male
  Weight: 44 kg

DRUGS (2)
  1. EPIDIOLEX [Suspect]
     Active Substance: CANNABIDIOL
     Indication: Lennox-Gastaut syndrome
     Dosage: 5 MG/KG/DAY, 110 MILLIGRAM, BID (WITH MEALS)
     Route: 048
     Dates: start: 202202, end: 202202
  2. EPIDIOLEX [Suspect]
     Active Substance: CANNABIDIOL
     Indication: Status epilepticus
     Dosage: 10 MG/KG/DAY, 220 MILLIGRAM, BID
     Route: 048
     Dates: start: 202202, end: 202202

REACTIONS (3)
  - Screaming [Unknown]
  - Insomnia [Unknown]
  - Underdose [Unknown]

NARRATIVE: CASE EVENT DATE: 20220201
